FAERS Safety Report 24253481 (Version 5)
Quarter: 2025Q1

REPORT INFORMATION
  Report Type: Spontaneous
  Country: US (occurrence: US)
  Receive Date: 20240827
  Receipt Date: 20250103
  Transmission Date: 20250408
  Serious: No
  Sender: PFIZER
  Company Number: US-PFIZER INC-202400241318

PATIENT
  Age: 13 Year
  Sex: Female
  Weight: 31.293 kg

DRUGS (1)
  1. GENOTROPIN [Suspect]
     Active Substance: SOMATROPIN
     Indication: Turner^s syndrome
     Dosage: 1.6 MG, 1X/DAY
     Route: 058
     Dates: start: 202408

REACTIONS (4)
  - Wrong technique in device usage process [Recovered/Resolved]
  - Device breakage [Recovered/Resolved]
  - Device issue [Recovered/Resolved]
  - Drug dose omission by device [Recovered/Resolved]

NARRATIVE: CASE EVENT DATE: 20240801
